FAERS Safety Report 20974938 (Version 3)
Quarter: 2022Q3

REPORT INFORMATION
  Report Type: Report from Study
  Country: CA (occurrence: CA)
  Receive Date: 20220617
  Receipt Date: 20220727
  Transmission Date: 20221027
  Serious: Yes (Other)
  Sender: FDA-Public Use
  Company Number: None

PATIENT
  Age: 49 Year
  Sex: Female
  Weight: 67 kg

DRUGS (2)
  1. OPDIVO [Suspect]
     Active Substance: NIVOLUMAB
     Indication: Metastatic gastric cancer
     Route: 042
     Dates: start: 20220104
  2. OPDIVO [Suspect]
     Active Substance: NIVOLUMAB
     Route: 042
     Dates: start: 20220104

REACTIONS (25)
  - Neuropathy peripheral [Not Recovered/Not Resolved]
  - Cognitive disorder [Unknown]
  - Arthralgia [Recovered/Resolved]
  - Pain in extremity [Recovered/Resolved]
  - Back pain [Recovered/Resolved]
  - Fatigue [Unknown]
  - Fatigue [Unknown]
  - Nausea [Unknown]
  - Dry mouth [Unknown]
  - Constipation [Unknown]
  - Pain [Unknown]
  - Depression [Unknown]
  - Anxiety [Unknown]
  - Decreased appetite [Unknown]
  - Rash [Unknown]
  - Dyspepsia [Unknown]
  - Dyspnoea [Unknown]
  - Diarrhoea [Unknown]
  - Malaise [Unknown]
  - Condition aggravated [Unknown]
  - Drug intolerance [Not Recovered/Not Resolved]
  - Pelvic pain [Unknown]
  - Hypoaesthesia [Unknown]
  - Asthenia [Unknown]
  - Vaginal haemorrhage [Unknown]

NARRATIVE: CASE EVENT DATE: 20220118
